FAERS Safety Report 8870996 (Version 3)
Quarter: 2013Q1

REPORT INFORMATION
  Report Type: Spontaneous
  Country: CA (occurrence: CA)
  Receive Date: 20121029
  Receipt Date: 20130304
  Transmission Date: 20140127
  Serious: Yes (Hospitalization, Other)
  Sender: FDA-Public Use
  Company Number: PHHY2010CA82742

PATIENT
  Sex: Male

DRUGS (18)
  1. EXJADE [Suspect]
     Indication: MYELODYSPLASTIC SYNDROME
     Dosage: 1750 MG, QD
     Route: 048
     Dates: start: 201010, end: 20130214
  2. EXJADE [Suspect]
     Indication: IRON OVERLOAD
     Dosage: 500 MG, QD
     Route: 048
  3. EXJADE [Suspect]
     Dosage: 250 MG, QD
     Route: 048
  4. EXJADE [Suspect]
     Route: 048
  5. GLUCOSAMINE PLUS [Concomitant]
     Indication: ARTHRITIS
  6. VITAMIN B12 [Concomitant]
  7. VITAMIN D [Concomitant]
  8. CALTRATE PLUS [Concomitant]
  9. RISEDRONATE SODIUM [Concomitant]
     Indication: BONE LOSS
  10. RAMIPRIL [Concomitant]
     Indication: CARDIAC DISORDER
  11. ASPIRIN [Concomitant]
     Indication: CARDIAC DISORDER
  12. ATORVASTATIN [Concomitant]
     Indication: BLOOD CHOLESTEROL
  13. DIGOXIN [Concomitant]
  14. WATER PILLS [Concomitant]
  15. CHOLESTEROL PILL [Concomitant]
  16. ASPIRIN CHILDREN [Concomitant]
  17. CALCIUM [Concomitant]
  18. VITAMIN B NOS [Concomitant]

REACTIONS (6)
  - Pneumonia [Unknown]
  - Diarrhoea [Not Recovered/Not Resolved]
  - Malaise [Not Recovered/Not Resolved]
  - Musculoskeletal discomfort [Unknown]
  - Hearing impaired [Unknown]
  - Serum ferritin increased [Unknown]
